FAERS Safety Report 4879763-7 (Version None)
Quarter: 2006Q1

REPORT INFORMATION
  Report Type: 
  Country: None (occurrence: None)
  Receive Date: 20060113
  Receipt Date: 20040224
  Transmission Date: 20060701
  Serious: Yes (Other)
  Sender: FDA-Public Use
  Company Number: US-GLAXOSMITHKLINE-B0325175A

PATIENT
  Age: 52 Year
  Sex: Female

DRUGS (4)
  1. ROSIGLITAZONE [Suspect]
     Route: 065
  2. PIOGLITAZONE HCL [Suspect]
     Route: 065
  3. GLUCOPHAGE [Concomitant]
     Route: 065
  4. MICRONASE [Concomitant]
     Route: 065

REACTIONS (5)
  - CONDITION AGGRAVATED [None]
  - MACULAR OEDEMA [None]
  - OEDEMA PERIPHERAL [None]
  - VISUAL ACUITY REDUCED [None]
  - WEIGHT INCREASED [None]
